FAERS Safety Report 7979874-3 (Version None)
Quarter: 2011Q4

REPORT INFORMATION
  Report Type: 
  Country: None (occurrence: None)
  Receive Date: 20111214
  Receipt Date: 20111208
  Transmission Date: 20120403
  Serious: Yes (Hospitalization)
  Sender: FDA-Public Use
  Company Number: BE-ROCHE-1008405

PATIENT
  Age: 68 Year
  Sex: Female
  Weight: 50 kg

DRUGS (11)
  1. FLUOROURACIL [Suspect]
     Indication: COLORECTAL CANCER METASTATIC
     Route: 042
     Dates: start: 20100913
  2. HALOPERIDOL [Concomitant]
     Indication: SLEEP DISORDER
     Route: 048
     Dates: start: 20100117
  3. LEVOFLOXACIN [Concomitant]
     Indication: INFECTION
     Route: 048
     Dates: start: 20101015, end: 20101019
  4. PANTOPRAZOLE [Concomitant]
     Indication: PROPHYLAXIS AGAINST GASTROINTESTINAL ULCER
     Route: 048
     Dates: start: 20100420
  5. EMCONCOR MITIS [Concomitant]
     Indication: HYPERTENSION
     Route: 048
     Dates: start: 20060503
  6. AVASTIN [Suspect]
     Indication: COLORECTAL CANCER METASTATIC
     Dates: start: 20100222
  7. FLUOROURACIL [Suspect]
     Route: 042
     Dates: start: 20100913
  8. PRAVASINE [Concomitant]
     Indication: HYPERCHOLESTEROLAEMIA
     Route: 048
     Dates: start: 20060503
  9. IRINOTECAN HCL [Suspect]
     Indication: COLORECTAL CANCER METASTATIC
     Route: 042
     Dates: start: 20100913
  10. LEVOFLOXACIN [Concomitant]
     Indication: PYREXIA
  11. SANDOSTATIN [Concomitant]
     Route: 048
     Dates: start: 20101011

REACTIONS (6)
  - GENERAL PHYSICAL HEALTH DETERIORATION [None]
  - DECREASED APPETITE [None]
  - DYSGEUSIA [None]
  - PYREXIA [None]
  - DIARRHOEA [None]
  - MUCOSAL INFLAMMATION [None]
